FAERS Safety Report 10761676 (Version 1)
Quarter: 2015Q1

REPORT INFORMATION
  Report Type: Spontaneous
  Country: US (occurrence: None)
  Receive Date: 20150203
  Receipt Date: 20150203
  Transmission Date: 20150721
  Serious: Yes (Other)
  Sender: FDA-Public Use
  Company Number: None

PATIENT
  Age: 58 Year
  Sex: Female
  Weight: 56.7 kg

DRUGS (1)
  1. GABAPENTIN. [Suspect]
     Active Substance: GABAPENTIN
     Indication: RESTLESS LEGS SYNDROME
     Dosage: 1 TABLET
     Route: 048
     Dates: start: 20150126, end: 20150126

REACTIONS (7)
  - Gait disturbance [None]
  - Condition aggravated [None]
  - Disorientation [None]
  - Reading disorder [None]
  - Muscle spasms [None]
  - Restless legs syndrome [None]
  - Myalgia [None]

NARRATIVE: CASE EVENT DATE: 20150126
